FAERS Safety Report 23889270 (Version 1)
Quarter: 2024Q2

REPORT INFORMATION
  Report Type: Spontaneous
  Country: US (occurrence: None)
  Receive Date: 20240523
  Receipt Date: 20240523
  Transmission Date: 20240716
  Serious: Yes (Hospitalization)
  Sender: FDA-Public Use
  Company Number: None

PATIENT
  Age: 60 Year
  Sex: Male

DRUGS (3)
  1. FORTEO [Suspect]
     Active Substance: TERIPARATIDE
     Indication: Osteoarthritis
     Dosage: OTHER STRENGTH : 600MCG/2.4ML;?FREQUENCY : DAILY;?
     Route: 058
     Dates: start: 20220610
  2. ENVARSUS XR [Concomitant]
     Active Substance: TACROLIMUS
  3. TERIPARATIDE [Concomitant]
     Active Substance: TERIPARATIDE

REACTIONS (2)
  - Product dose omission issue [None]
  - Product dispensing issue [None]

NARRATIVE: CASE EVENT DATE: 20240501
